FAERS Safety Report 7352223-X (Version None)
Quarter: 2011Q1

REPORT INFORMATION
  Report Type: 
  Country: None (occurrence: None)
  Receive Date: 20110309
  Receipt Date: 20110309
  Transmission Date: 20110831
  Serious: Yes (Life-Threatening)
  Sender: FDA-Public Use
  Company Number: None

PATIENT

DRUGS (1)
  1. CIPROFLOXACIN [Suspect]
     Indication: CYSTITIS
     Dosage: 500 MG 2 TIME A DAY
     Dates: start: 20110203, end: 20110211

REACTIONS (8)
  - DECREASED APPETITE [None]
  - HEADACHE [None]
  - PYREXIA [None]
  - KIDNEY INFECTION [None]
  - DIZZINESS [None]
  - NAUSEA [None]
  - DISCOMFORT [None]
  - TOXICITY TO VARIOUS AGENTS [None]
